FAERS Safety Report 12447534 (Version 2)
Quarter: 2016Q2

REPORT INFORMATION
  Report Type: Spontaneous
  Country: US (occurrence: US)
  Receive Date: 20160608
  Receipt Date: 20160617
  Transmission Date: 20160815
  Serious: Yes (Other)
  Sender: FDA-Public Use
  Company Number: US-BEH-2016070036

PATIENT
  Age: 19 Year
  Sex: Male

DRUGS (1)
  1. HIZENTRA [Suspect]
     Active Substance: HUMAN IMMUNOGLOBULIN G
     Indication: IMMUNODEFICIENCY COMMON VARIABLE
     Dosage: 12 G, QW
     Route: 058
     Dates: start: 20150527

REACTIONS (3)
  - Ear operation [Recovered/Resolved]
  - Drug ineffective [Unknown]
  - Otitis media chronic [Recovered/Resolved]

NARRATIVE: CASE EVENT DATE: 20160525
